FAERS Safety Report 6120478-5 (Version None)
Quarter: 2009Q1

REPORT INFORMATION
  Report Type: 
  Country: None (occurrence: None)
  Receive Date: 20090317
  Receipt Date: 20090313
  Transmission Date: 20090719
  Serious: Yes (Other)
  Sender: FDA-Public Use
  Company Number: JP-JNJFOC-20090303579

PATIENT

DRUGS (3)
  1. DUROTEP MT PATCH [Suspect]
     Indication: DRUG USE FOR UNKNOWN INDICATION
     Route: 062
  2. CLARITHROMYCIN [Suspect]
     Indication: DRUG USE FOR UNKNOWN INDICATION
     Route: 048
  3. OPSO [Suspect]
     Indication: DRUG USE FOR UNKNOWN INDICATION
     Route: 048

REACTIONS (1)
  - DELIRIUM [None]
